FAERS Safety Report 10516237 (Version 1)
Quarter: 2014Q4

REPORT INFORMATION
  Report Type: Spontaneous
  Country: US (occurrence: None)
  Receive Date: 20141003
  Receipt Date: 20141003
  Transmission Date: 20150528
  Serious: Yes (Other)
  Sender: FDA-Public Use
  Company Number: 2014-11217

PATIENT
  Age: 62 Year
  Sex: Female

DRUGS (4)
  1. NEURONTIN [Concomitant]
     Active Substance: GABAPENTIN
  2. ABILIFY [Concomitant]
     Active Substance: ARIPIPRAZOLE
  3. CLONAZEPAM. [Concomitant]
     Active Substance: CLONAZEPAM
  4. BUPROPION HYDROCHLORIDE. [Suspect]
     Active Substance: BUPROPION HYDROCHLORIDE
     Indication: DEPRESSION
     Route: 048
     Dates: start: 20140430

REACTIONS (5)
  - Hypokinesia [None]
  - Paranoia [None]
  - Anxiety [None]
  - Disorientation [None]
  - Nausea [None]

NARRATIVE: CASE EVENT DATE: 20140518
